FAERS Safety Report 15506640 (Version 1)
Quarter: 2018Q4

REPORT INFORMATION
  Report Type: Spontaneous
  Country: JP (occurrence: JP)
  Receive Date: 20181016
  Receipt Date: 20181016
  Transmission Date: 20190205
  Serious: Yes (Life-Threatening, Other)
  Sender: FDA-Public Use
  Company Number: JP-BRACCO-2018JP05013

PATIENT
  Age: 73 Year
  Sex: Male

DRUGS (7)
  1. OMEPRAZOLE. [Concomitant]
     Active Substance: OMEPRAZOLE
     Indication: PROPHYLAXIS
     Dosage: DAILY DOSE 40 MG
     Route: 041
     Dates: start: 20180925
  2. HEPARIN [Concomitant]
     Active Substance: HEPARIN SODIUM
     Dosage: DAILY DOSE 5 ML
     Dates: start: 20180925
  3. TAZOBACTAM [Concomitant]
     Active Substance: TAZOBACTAM
     Indication: PERITONITIS
     Dosage: DAILY DOSE 9 G
     Route: 041
     Dates: start: 20180925
  4. SEISHOKU [Concomitant]
     Active Substance: SODIUM CHLORIDE
  5. SOLDEM 3A [Concomitant]
     Active Substance: CARBOHYDRATES\POTASSIUM CHLORIDE\SODIUM CHLORIDE\SODIUM LACTATE
     Indication: FLUID REPLACEMENT
     Dosage: DAILY DOSE 500 ML
     Route: 041
     Dates: start: 20180925
  6. IOPAMIRON [Suspect]
     Active Substance: IOPAMIDOL
     Indication: COMPUTERISED TOMOGRAM
     Dosage: 100 ML, SINGLE
     Route: 042
     Dates: start: 20180926, end: 20180926
  7. VEEN-F [Concomitant]
     Active Substance: CALCIUM CHLORIDE\MAGNESIUM CHLORIDE\POTASSIUM CHLORIDE\SODIUM ACETATE\SODIUM CHLORIDE
     Indication: FLUID REPLACEMENT
     Dosage: DAILY DOSE 500 ML
     Route: 041
     Dates: start: 20180928

REACTIONS (3)
  - Septic shock [Unknown]
  - Cardiac arrest [Recovered/Resolved]
  - Anaphylactic shock [Recovered/Resolved]

NARRATIVE: CASE EVENT DATE: 20180926
